FAERS Safety Report 10091225 (Version 1)
Quarter: 2014Q2

REPORT INFORMATION
  Report Type: Spontaneous
  Country: US (occurrence: US)
  Receive Date: 20140421
  Receipt Date: 20140421
  Transmission Date: 20141212
  Serious: Yes (Other)
  Sender: FDA-Public Use
  Company Number: US-ELI_LILLY_AND_COMPANY-US201404003312

PATIENT
  Age: 57 Year
  Sex: Male

DRUGS (4)
  1. HUMALOG LISPRO [Suspect]
     Indication: TYPE 2 DIABETES MELLITUS
     Dosage: 20 U, TID
     Route: 065
     Dates: start: 2011
  2. HUMALOG LISPRO [Suspect]
     Dosage: 12 U, TID
     Route: 065
  3. LANTUS [Concomitant]
  4. METFORMIN [Concomitant]

REACTIONS (7)
  - Blood triglycerides abnormal [Unknown]
  - Blood cholesterol abnormal [Unknown]
  - Malaise [Unknown]
  - Blood glucose increased [Unknown]
  - Feeling abnormal [Unknown]
  - Headache [Unknown]
  - Intentional product misuse [Unknown]
